FAERS Safety Report 8476168-7 (Version None)
Quarter: 2012Q2

REPORT INFORMATION
  Report Type: 
  Country: None (occurrence: None)
  Receive Date: 20120628
  Receipt Date: 20120618
  Transmission Date: 20120825
  Serious: Yes (Hospitalization)
  Sender: FDA-Public Use
  Company Number: US-ELI_LILLY_AND_COMPANY-US201102005179

PATIENT
  Sex: Female

DRUGS (14)
  1. FORTEO [Suspect]
     Dosage: 20 UG, QD
     Route: 065
  2. WARFARIN SODIUM [Concomitant]
     Dosage: 4 MG, UNKNOWN
  3. WARFARIN SODIUM [Concomitant]
     Dosage: 5 MG, UNKNOWN
  4. METOPROLOL TARTRATE [Concomitant]
     Indication: CARDIAC DISORDER
     Dosage: UNK
  5. FORTEO [Suspect]
     Dosage: 20 UG, QD
     Route: 065
  6. WARFARIN SODIUM [Concomitant]
     Dosage: 6 MG, UNKNOWN
  7. FORTEO [Suspect]
     Dosage: 20 UG, QD
     Route: 065
  8. CYMBALTA [Concomitant]
     Dosage: 30 MG, QD
     Dates: start: 20110601
  9. VITAMIN D [Concomitant]
     Dosage: 2000 IU, QD
  10. FORTEO [Suspect]
     Indication: OSTEOPOROSIS
     Dosage: 20 UG, QD
     Route: 065
     Dates: start: 20110208
  11. FORTEO [Suspect]
     Dosage: 20 UG, QD
  12. FORTEO [Suspect]
     Dosage: 20 UG, QD
     Dates: start: 20110208
  13. FORTEO [Suspect]
     Dosage: 20 UG, QD
     Route: 065
     Dates: end: 20110426
  14. PRIMIDONE [Concomitant]
     Dosage: UNK

REACTIONS (12)
  - GASTRIC HAEMORRHAGE [None]
  - NASOPHARYNGITIS [None]
  - SCIATIC NERVE INJURY [None]
  - DYSGEUSIA [None]
  - ABDOMINAL PAIN UPPER [None]
  - INJECTION SITE ERYTHEMA [None]
  - MUSCULAR WEAKNESS [None]
  - FATIGUE [None]
  - TREMOR [None]
  - BACK PAIN [None]
  - SINUSITIS [None]
  - INJECTION SITE PAIN [None]
